FAERS Safety Report 8816440 (Version 1)
Quarter: 2012Q4

REPORT INFORMATION
  Report Type: Spontaneous
  Country: US (occurrence: None)
  Receive Date: 20120929
  Receipt Date: 20120929
  Transmission Date: 20130627
  Serious: Yes (Other)
  Sender: FDA-Public Use
  Company Number: None

PATIENT
  Age: 53 Year
  Sex: Male

DRUGS (1)
  1. ERIVEDGE [Suspect]
     Indication: BASAL CELL CARCINOMA
     Route: 048
     Dates: start: 20120323, end: 20120913

REACTIONS (6)
  - Alopecia [None]
  - Madarosis [None]
  - Madarosis [None]
  - Stomatitis [None]
  - Ingrown hair [None]
  - Rash pustular [None]
